FAERS Safety Report 9604778 (Version 1)
Quarter: 2013Q4

REPORT INFORMATION
  Report Type: Spontaneous
  Country: US (occurrence: US)
  Receive Date: 20131008
  Receipt Date: 20131008
  Transmission Date: 20140711
  Serious: No
  Sender: FDA-Public Use
  Company Number: US-MYLANLABS-2013S1019574

PATIENT
  Age: 83 Year
  Sex: Female
  Weight: 69.4 kg

DRUGS (2)
  1. IBANDRONATE SODIUM TABLETS [Suspect]
     Indication: OSTEOPOROSIS
     Route: 048
     Dates: start: 201305
  2. AMLODIPINE [Concomitant]
     Indication: BLOOD PRESSURE INCREASED
     Route: 048

REACTIONS (1)
  - Alopecia [Not Recovered/Not Resolved]
